FAERS Safety Report 5620185-9 (Version None)
Quarter: 2008Q1

REPORT INFORMATION
  Report Type: 
  Country: None (occurrence: None)
  Receive Date: 20080208
  Receipt Date: 20080129
  Transmission Date: 20080703
  Serious: Yes (Hospitalization)
  Sender: FDA-Public Use
  Company Number: JP-SANOFI-SYNTHELABO-F01200800153

PATIENT
  Sex: Female
  Weight: 51 kg

DRUGS (5)
  1. TAKEPRON [Concomitant]
     Dosage: 15 MG
     Route: 048
     Dates: start: 20060905
  2. ASPIRIN [Concomitant]
     Dosage: 100 MG
     Route: 048
     Dates: start: 20050323
  3. CLOPIDOGREL [Suspect]
     Indication: LACUNAR INFARCTION
     Route: 048
     Dates: start: 20061016, end: 20070803
  4. ULCERLMIN [Concomitant]
     Dosage: 3 G
     Route: 048
     Dates: start: 20060908
  5. LIVALO [Concomitant]
     Indication: HYPERLIPIDAEMIA
     Dosage: 1 MG
     Route: 048
     Dates: start: 20060905

REACTIONS (1)
  - EMBOLIC CEREBRAL INFARCTION [None]
